FAERS Safety Report 7739616-3 (Version None)
Quarter: 2011Q3

REPORT INFORMATION
  Report Type: 
  Country: None (occurrence: None)
  Receive Date: 20110909
  Receipt Date: 20110831
  Transmission Date: 20111222
  Serious: Yes (Hospitalization)
  Sender: FDA-Public Use
  Company Number: FR-EISAI INC-E3810-04904-SPO-FR

PATIENT
  Sex: Female

DRUGS (12)
  1. RABEPRAZOLE SODIUM [Suspect]
     Route: 048
     Dates: start: 20110805
  2. MORPHINE [Suspect]
     Indication: PAIN
     Route: 041
     Dates: start: 20110805
  3. LORAZEPAM [Concomitant]
     Route: 048
  4. CEFAZOLIN [Concomitant]
     Route: 041
     Dates: start: 20110805
  5. RIVAROXABAN [Suspect]
     Indication: THROMBOSIS PROPHYLAXIS
     Dates: start: 20110805
  6. INDAPAMIDE [Concomitant]
     Route: 048
  7. TRAMADOL HCL [Concomitant]
     Route: 048
     Dates: start: 20110805
  8. FORLAX [Concomitant]
     Route: 048
  9. TANAKAN [Concomitant]
     Route: 048
  10. FERROUS SULFATE TAB [Concomitant]
     Route: 048
  11. ACETAMINOPHEN [Concomitant]
     Route: 041
     Dates: start: 20110805
  12. ACETAMINOPHEN [Concomitant]
     Route: 048

REACTIONS (1)
  - DEEP VEIN THROMBOSIS [None]
